FAERS Safety Report 7278419-3 (Version None)
Quarter: 2011Q1

REPORT INFORMATION
  Report Type: 
  Country: None (occurrence: None)
  Receive Date: 20110202
  Receipt Date: 20110202
  Transmission Date: 20110831
  Serious: Yes (Hospitalization)
  Sender: FDA-Public Use
  Company Number: None

PATIENT
  Age: 62 Year
  Sex: Male

DRUGS (20)
  1. QUALAQUIN [Suspect]
     Indication: MUSCLE SPASMS
     Dates: start: 20101112, end: 20101124
  2. QUALAQUIN [Suspect]
     Indication: RESTLESS LEGS SYNDROME
     Dates: start: 20101112, end: 20101124
  3. HCTZ/TRIAM [Concomitant]
  4. ISOSORBIDE DINITRATE [Concomitant]
  5. CTM [Concomitant]
  6. MESALAMINE [Concomitant]
  7. NIACIN [Concomitant]
  8. METOPROLOL [Concomitant]
  9. IRON [Concomitant]
  10. ASCORBIC ACID [Concomitant]
  11. EZETIMIBE [Concomitant]
  12. CLOPIDOGREL [Concomitant]
  13. LISINOPRIL [Concomitant]
  14. FISH OIL [Concomitant]
  15. WELCHOL [Concomitant]
  16. CETIRIZINE [Concomitant]
  17. MULTI-VITAMINS [Concomitant]
  18. CO-Q10 [Concomitant]
  19. RED RICE YEAST [Concomitant]
  20. NITROSTAT [Concomitant]

REACTIONS (2)
  - THROMBOTIC THROMBOCYTOPENIC PURPURA [None]
  - RENAL FAILURE ACUTE [None]
